FAERS Safety Report 21952478 (Version 2)
Quarter: 2023Q2

REPORT INFORMATION
  Report Type: Report from Study
  Country: US (occurrence: US)
  Receive Date: 20230203
  Receipt Date: 20230501
  Transmission Date: 20230722
  Serious: No
  Sender: FDA-Public Use
  Company Number: US-INCYTE CORPORATION-2022IN012735

PATIENT

DRUGS (2)
  1. JAKAFI [Suspect]
     Active Substance: RUXOLITINIB
     Indication: Essential thrombocythaemia
     Dosage: 20 MILLIGRAM, BID
     Route: 048
  2. HYDREA [Concomitant]
     Active Substance: HYDROXYUREA
     Indication: Essential thrombocythaemia
     Route: 065

REACTIONS (3)
  - Treatment noncompliance [Unknown]
  - Product availability issue [Unknown]
  - Off label use [Unknown]
